FAERS Safety Report 18912662 (Version 2)
Quarter: 2021Q2

REPORT INFORMATION
  Report Type: Spontaneous
  Country: US (occurrence: US)
  Receive Date: 20210218
  Receipt Date: 20210409
  Transmission Date: 20210717
  Serious: No
  Sender: FDA-Public Use
  Company Number: US-ASTRAZENECA-2020SF64227

PATIENT
  Sex: Female
  Weight: 109 kg

DRUGS (1)
  1. SYMBICORT [Suspect]
     Active Substance: BUDESONIDE\FORMOTEROL FUMARATE DIHYDRATE
     Indication: ASTHMA
     Dosage: 160/4.5 UG, UNKNOWN FREQUENCY UNKNOWN
     Route: 055

REACTIONS (17)
  - Overweight [Unknown]
  - Rhinitis allergic [Unknown]
  - Sleep apnoea syndrome [Unknown]
  - Nasal obstruction [Unknown]
  - Hypertension [Unknown]
  - Ill-defined disorder [Unknown]
  - Hypercholesterolaemia [Unknown]
  - Sinusitis [Unknown]
  - Drug ineffective [Unknown]
  - Fatigue [Unknown]
  - Product dose omission issue [Unknown]
  - Device malfunction [Unknown]
  - Irritable bowel syndrome [Unknown]
  - Eczema [Unknown]
  - Expired device used [Unknown]
  - Intentional product misuse [Unknown]
  - Wrong technique in product usage process [Unknown]
